FAERS Safety Report 8348383-4 (Version None)
Quarter: 2012Q2

REPORT INFORMATION
  Report Type: 
  Country: None (occurrence: None)
  Receive Date: 20120509
  Receipt Date: 20120425
  Transmission Date: 20120825
  Serious: Yes (Hospitalization)
  Sender: FDA-Public Use
  Company Number: US-ROCHE-1063839

PATIENT
  Sex: Female
  Weight: 73.548 kg

DRUGS (62)
  1. KEFLEX [Concomitant]
     Route: 048
     Dates: start: 20110714, end: 20110725
  2. ALLEGRA-D 12 HOUR [Concomitant]
     Dates: start: 20070902, end: 20100408
  3. PREVACID [Concomitant]
     Indication: GASTROOESOPHAGEAL REFLUX DISEASE
     Route: 048
     Dates: start: 19970101, end: 20100104
  4. TYLENOL ARTHRITIS [Concomitant]
     Indication: HEADACHE
     Dosage: 650 MG PO PRN
     Dates: start: 20040823
  5. AMOXICILLIN [Concomitant]
     Indication: CELLULITIS
     Route: 048
     Dates: start: 20100827, end: 20100902
  6. MORPHINE [Concomitant]
     Indication: CELLULITIS
     Dosage: OTC
     Route: 042
     Dates: start: 20100825, end: 20100825
  7. PENICILLIN [Concomitant]
     Indication: GINGIVAL INFECTION
     Route: 048
     Dates: start: 20110519, end: 20110529
  8. MIRALAX [Concomitant]
     Dates: start: 20060224, end: 20060901
  9. ALLEGRA-D 12 HOUR [Concomitant]
     Indication: HYPERSENSITIVITY
     Route: 048
     Dates: start: 20060502, end: 20070803
  10. AUGMENTIN [Concomitant]
     Indication: URINARY TRACT INFECTION
     Route: 048
     Dates: start: 20071006, end: 20071015
  11. METHOTREXATE [Concomitant]
     Indication: RHEUMATOID ARTHRITIS
     Dosage: FREQUENCY 5/WK
     Route: 048
     Dates: start: 20020530, end: 20091007
  12. FOLIC ACID [Concomitant]
     Indication: STOMATITIS
     Dosage: QD
     Dates: start: 20030113, end: 20120124
  13. FOLIC ACID [Concomitant]
     Dosage: QD
     Route: 048
     Dates: start: 20120330
  14. BENADRYL [Concomitant]
     Indication: ARTHROPOD STING
     Dosage: 25 MG PO OTC
     Dates: start: 20060925, end: 20060925
  15. BONIVA [Concomitant]
     Indication: OSTEOPOROSIS
     Dates: start: 20091021
  16. EXCEDRIN (MIGRAINE) [Concomitant]
     Indication: HEADACHE
     Dosage: 2 TABLET PRN
     Route: 048
     Dates: start: 20100104, end: 20111111
  17. MOM [Concomitant]
     Indication: CONSTIPATION
     Dosage: 1 CAP PRN
     Dates: start: 19870101, end: 20100624
  18. CORTISONE ACETATE [Concomitant]
     Indication: PRURITUS
     Dosage: 80 MG DEPO
     Dates: start: 20070803, end: 20070803
  19. PREDNISONE TAB [Concomitant]
     Indication: RHEUMATOID ARTHRITIS
     Route: 048
     Dates: start: 20020530
  20. FOLIC ACID [Concomitant]
     Dosage: QD
     Route: 048
     Dates: start: 20120101, end: 20120329
  21. OMNICEF [Concomitant]
     Indication: EYE INFECTION
     Dosage: 300 MG EVERY 12 HRS
     Dates: start: 20080620, end: 20080630
  22. FLU SHOT [Concomitant]
     Indication: PROPHYLAXIS
     Dosage: 0.5 CC IM OTO
     Dates: start: 20091005, end: 20091005
  23. METHOTREXATE [Concomitant]
     Route: 048
     Dates: start: 20120130
  24. MARCAINE [Concomitant]
     Indication: ARTHRALGIA
     Dates: start: 20100317, end: 20100317
  25. AMPICILINA [Concomitant]
     Indication: CELLULITIS
     Route: 042
     Dates: start: 20100825, end: 20100825
  26. LISINOPRIL [Concomitant]
     Indication: HYPERTENSION
     Route: 048
     Dates: start: 20111101
  27. MABTHERA [Suspect]
     Indication: RHEUMATOID ARTHRITIS
     Dosage: LAST DOSE PRIOR TO SAE 08/APR/2010
     Route: 042
     Dates: start: 20060502
  28. SOLU-MEDROL [Concomitant]
     Indication: RASH
     Dates: start: 20060820, end: 20060820
  29. LIPODERMA PATCH [Concomitant]
     Indication: BACK PAIN
     Dates: start: 20071001
  30. ARISTOSPAN [Concomitant]
     Indication: ARTHRALGIA
     Dosage: 3 ML IA
     Dates: start: 20100317, end: 20100317
  31. TETANUS IMMUNE GLOBULIN (HUMAN) [Concomitant]
     Indication: PROPHYLAXIS
     Dosage: FREQUENCY OTC
     Route: 030
     Dates: start: 20100627, end: 20100627
  32. ZOFRAN [Concomitant]
     Indication: CELLULITIS
     Dosage: OTO
     Route: 042
     Dates: start: 20100825, end: 20100825
  33. VALTREX [Concomitant]
     Indication: STOMATITIS
     Dosage: QD
     Route: 048
     Dates: start: 20100116
  34. OMEPRAZOLE [Concomitant]
     Route: 048
     Dates: start: 20111101
  35. METHOTREXATE [Concomitant]
     Indication: RHEUMATOID ARTHRITIS
     Route: 048
     Dates: start: 20120130
  36. ZYRTEC [Concomitant]
     Dosage: QD
     Route: 048
     Dates: start: 20070804, end: 20070901
  37. LASIX [Concomitant]
     Indication: OEDEMA PERIPHERAL
     Route: 048
     Dates: start: 20040407
  38. METHOTREXATE [Concomitant]
     Dates: start: 20091021, end: 20120116
  39. VISTARIL [Concomitant]
     Indication: RASH
     Dates: start: 20060820, end: 20060820
  40. MIRALAX [Concomitant]
     Indication: COLITIS
     Dosage: 1 CAP PRN
     Dates: start: 20060902, end: 20070101
  41. CLARITIN [Concomitant]
     Indication: PRURITUS
     Dosage: QD
     Route: 048
     Dates: start: 20070804, end: 20070812
  42. MOMETASONE FUROATE [Concomitant]
     Indication: RASH
     Dosage: 0.1 % TOP ONCE QD
     Dates: start: 20070803, end: 20070810
  43. PREVACID [Concomitant]
     Dosage: QD
     Route: 048
     Dates: start: 20111209
  44. FLEXERIL [Concomitant]
     Indication: INSOMNIA
     Dosage: 10 MG PO PRN
     Dates: start: 20030113, end: 20110815
  45. EVISTA [Concomitant]
     Indication: OSTEOPOROSIS
     Dosage: 60 MG PO QD
     Dates: start: 20040823, end: 20091021
  46. OTC COLD MEDICATION [Concomitant]
     Indication: NASOPHARYNGITIS
     Dosage: 2 TAB PO PRN
     Dates: start: 20081013, end: 20081027
  47. VITAMIN E [Concomitant]
     Dosage: 1 CAP PO QD
     Dates: start: 20090101
  48. VICODIN [Concomitant]
     Indication: PAIN
     Dosage: 5/500 MG, PRN
     Route: 048
     Dates: start: 20100916
  49. PRAVASTATIN [Concomitant]
     Indication: DYSLIPIDAEMIA
     Route: 048
     Dates: start: 20111114
  50. SULFADIAZINE [Concomitant]
     Indication: RHEUMATOID ARTHRITIS
  51. KEFLEX [Concomitant]
     Indication: PROPHYLAXIS
     Route: 048
     Dates: start: 20060810, end: 20060816
  52. KEFLEX [Concomitant]
     Indication: WOUND
     Route: 048
     Dates: start: 20090720, end: 20090815
  53. RESTASIS [Concomitant]
     Indication: DRY EYE
     Dates: start: 20080419
  54. ZITHROMAX [Concomitant]
     Route: 048
     Dates: start: 20070925, end: 20070925
  55. GLUCOTROL [Concomitant]
     Indication: TYPE 2 DIABETES MELLITUS
     Route: 048
     Dates: start: 20040407
  56. DARVOCET [Concomitant]
     Indication: RHEUMATOID ARTHRITIS
     Dosage: PO PRN
     Dates: start: 20040407, end: 20110815
  57. AMOXICILLIN [Concomitant]
     Indication: TOOTH INFECTION
     Dates: start: 20071228, end: 20080110
  58. FLAXSEED [Concomitant]
     Dosage: 1 TAB PO QD
     Dates: start: 20090101
  59. SODIUM CHLORIDE [Concomitant]
     Indication: CELLULITIS
     Dosage: PRN
     Route: 042
     Dates: start: 20100824, end: 20100827
  60. ERYTHROCIN [Concomitant]
     Indication: EAR INFECTION
     Route: 048
     Dates: start: 20101115, end: 20101129
  61. CEFZIL [Concomitant]
     Indication: LYMPHADENOPATHY
     Dosage: QD
     Route: 048
     Dates: start: 20110301, end: 20110311
  62. ROCEPHIN [Concomitant]
     Indication: WOUND
     Dosage: OTO
     Route: 042
     Dates: start: 20110714, end: 20110714

REACTIONS (1)
  - HYPOGLYCAEMIA [None]
